FAERS Safety Report 20419237 (Version 2)
Quarter: 2022Q1

REPORT INFORMATION
  Report Type: Spontaneous
  Country: US (occurrence: US)
  Receive Date: 20220203
  Receipt Date: 20220310
  Transmission Date: 20220423
  Serious: No
  Sender: FDA-Public Use
  Company Number: US-AIMMUNE THERAPEUTICS, INC.-2022AIMT00077

PATIENT

DRUGS (3)
  1. PALFORZIA [Suspect]
     Active Substance: PEANUT
     Indication: Food allergy
     Dosage: 12 MG, 1X/DAY, LAST DOSE PRIOR EVENT ONSET
     Route: 048
     Dates: start: 20220125, end: 20220125
  2. PALFORZIA [Suspect]
     Active Substance: PEANUT
     Dosage: 6 MG, 1X/DAY, REDUCED DOSE
     Route: 048
     Dates: start: 20220126, end: 20220207
  3. PALFORZIA [Suspect]
     Active Substance: PEANUT
     Dosage: 12 MG, 1X/DAY, RE-UPDOSED
     Route: 048
     Dates: start: 20220208

REACTIONS (3)
  - Throat tightness [Recovered/Resolved]
  - Cough [Recovered/Resolved]
  - Asthma [Unknown]

NARRATIVE: CASE EVENT DATE: 20220125
